FAERS Safety Report 24958952 (Version 1)
Quarter: 2025Q1

REPORT INFORMATION
  Report Type: Other
  Country: US (occurrence: US)
  Receive Date: 20250212
  Receipt Date: 20250212
  Transmission Date: 20250408
  Serious: Yes (Hospitalization, Other)
  Sender: ESJAY PHARMA
  Company Number: US-ESJAY PHARMA-000088

PATIENT
  Age: 69 Year
  Sex: Male

DRUGS (11)
  1. DONEPEZIL [Suspect]
     Active Substance: DONEPEZIL
     Indication: Cognitive disorder
     Dates: start: 202304
  2. CLOZAPINE [Concomitant]
     Active Substance: CLOZAPINE
     Indication: Psychotic symptom
  3. HALOPERIDOL [Concomitant]
     Active Substance: HALOPERIDOL
     Indication: Agitation
  4. LORAZEPAM [Concomitant]
     Active Substance: LORAZEPAM
     Indication: Agitation
  5. RIVASTIGMINE [Concomitant]
     Active Substance: RIVASTIGMINE
     Indication: Cognitive disorder
  6. GALANTAMINE [Concomitant]
     Active Substance: GALANTAMINE
     Indication: Cognitive disorder
  7. CLOZAPINE [Concomitant]
     Active Substance: CLOZAPINE
     Indication: Schizoaffective disorder bipolar type
  8. CLOZAPINE [Concomitant]
     Active Substance: CLOZAPINE
     Indication: Schizoaffective disorder bipolar type
  9. DONEPEZIL [Suspect]
     Active Substance: DONEPEZIL
     Indication: Schizoaffective disorder bipolar type
     Dates: start: 202309
  10. HALOPERIDOL [Concomitant]
     Active Substance: HALOPERIDOL
     Indication: Agitation
  11. DONEPEZIL [Suspect]
     Active Substance: DONEPEZIL
     Indication: Schizoaffective disorder bipolar type
     Dates: start: 202304

REACTIONS (9)
  - Delirium [Recovered/Resolved]
  - Salivary hypersecretion [Unknown]
  - Drooling [Unknown]
  - Gastrointestinal pain [Unknown]
  - Diarrhoea [Unknown]
  - Muscle contractions involuntary [Unknown]
  - Miosis [Unknown]
  - Urinary incontinence [Unknown]
  - Fall [Unknown]
